FAERS Safety Report 13196275 (Version 3)
Quarter: 2017Q1

REPORT INFORMATION
  Report Type: Spontaneous
  Country: US (occurrence: US)
  Receive Date: 20170208
  Receipt Date: 20170327
  Transmission Date: 20170428
  Serious: No
  Sender: FDA-Public Use
  Company Number: US-PFIZER INC-2014212304

PATIENT
  Age: 21 Year
  Sex: Male

DRUGS (26)
  1. OXYCODONE [Concomitant]
     Active Substance: OXYCODONE
     Dosage: 20 MG, UNK
  2. PERCOCET [Concomitant]
     Active Substance: ACETAMINOPHEN\OXYCODONE HYDROCHLORIDE
     Indication: JOINT DISLOCATION
     Dosage: UNK, 3X/DAY
  3. MORPHINE [Concomitant]
     Active Substance: MORPHINE
     Dosage: UNK
  4. LYRICA [Suspect]
     Active Substance: PREGABALIN
     Indication: ARTHRITIS
     Dosage: 100 MG, UNK
  5. OXYCODONE [Concomitant]
     Active Substance: OXYCODONE
     Indication: BACK PAIN
     Dosage: 15 MG, UNK
  6. OXYCODONE [Concomitant]
     Active Substance: OXYCODONE
     Dosage: 5 MG, DAILY
  7. SOMA [Concomitant]
     Active Substance: CARISOPRODOL
     Dosage: 250 MG, UNK
  8. MORPHINE [Concomitant]
     Active Substance: MORPHINE
     Indication: BACK PAIN
     Dosage: 15 MG, 2X/DAY
     Route: 048
     Dates: start: 2016, end: 201701
  9. LYRICA [Suspect]
     Active Substance: PREGABALIN
     Indication: BACK PAIN
     Dosage: 75 MG, 4X/DAY
     Route: 048
     Dates: start: 2014
  10. DURAGESIC [Concomitant]
     Active Substance: FENTANYL
     Indication: INJURY
     Dosage: UNK (50MCG/HOUR, ONE PATCH LASTS 72 HOURS, ON HIS LOWER RIB CAGE OR BACK)
     Dates: start: 201701
  11. LYRICA [Suspect]
     Active Substance: PREGABALIN
     Indication: FIBROMYALGIA
     Dosage: 100 MG, 3X/DAY
     Dates: start: 2014
  12. OXYCODONE [Concomitant]
     Active Substance: OXYCODONE
     Indication: INJURY
     Dosage: UNK, (5/325 MG)
  13. PERCOCET [Concomitant]
     Active Substance: ACETAMINOPHEN\OXYCODONE HYDROCHLORIDE
     Indication: MENISCUS INJURY
     Dosage: UNK, 4X/DAY
  14. MORPHINE [Concomitant]
     Active Substance: MORPHINE
     Indication: JOINT DISLOCATION
     Dosage: 15 MG, 4X/DAY
     Route: 048
     Dates: end: 2015
  15. LYRICA [Suspect]
     Active Substance: PREGABALIN
     Indication: NERVE INJURY
     Dosage: UNK
     Dates: end: 201701
  16. LYRICA [Suspect]
     Active Substance: PREGABALIN
     Indication: SEIZURE
  17. PERCOCET [Concomitant]
     Active Substance: ACETAMINOPHEN\OXYCODONE HYDROCHLORIDE
     Indication: SHOULDER OPERATION
     Dosage: 10 MG, 3X/DAY
     Route: 048
     Dates: start: 2013, end: 2014
  18. LYRICA [Suspect]
     Active Substance: PREGABALIN
     Indication: LUMBAR RADICULOPATHY
     Dosage: 100 MG, 3X/DAY
     Route: 048
  19. MORPHINE [Concomitant]
     Active Substance: MORPHINE
     Indication: MENISCUS INJURY
  20. OXYCODONE [Concomitant]
     Active Substance: OXYCODONE
     Dosage: 50 MG, 3X/DAY
     Route: 048
     Dates: start: 201503
  21. CARISOPRODOL. [Concomitant]
     Active Substance: CARISOPRODOL
     Dosage: 350 MG, 3X/DAY
     Route: 048
  22. CARISOPRODOL. [Concomitant]
     Active Substance: CARISOPRODOL
     Indication: MUSCLE RELAXANT THERAPY
     Dosage: 350 MG, UNK
  23. PERCOCET [Concomitant]
     Active Substance: ACETAMINOPHEN\OXYCODONE HYDROCHLORIDE
     Indication: BACK PAIN
  24. MORPHINE [Concomitant]
     Active Substance: MORPHINE
     Indication: SHOULDER OPERATION
     Dosage: 15 MG, UNK (TWO OR THREE TIMES A DAY)
     Route: 048
     Dates: start: 2014, end: 2015
  25. MORPHINE [Concomitant]
     Active Substance: MORPHINE
     Indication: BACK PAIN
  26. DURAGESIC [Concomitant]
     Active Substance: FENTANYL
     Indication: BACK PAIN
     Dosage: UNK (PLACES IT AT BOTTOM OF RIBS OR MIDDLE SIDE OF BACK)

REACTIONS (3)
  - Drug ineffective [Unknown]
  - Anaemia [Unknown]
  - Mood altered [Unknown]

NARRATIVE: CASE EVENT DATE: 2014
